FAERS Safety Report 13652850 (Version 1)
Quarter: 2017Q2

REPORT INFORMATION
  Report Type: Spontaneous
  Country: US (occurrence: US)
  Receive Date: 20170614
  Receipt Date: 20170614
  Transmission Date: 20170830
  Serious: No
  Sender: FDA-Public Use
  Company Number: US-ROCHE-1460135

PATIENT
  Sex: Male

DRUGS (1)
  1. XELODA [Suspect]
     Active Substance: CAPECITABINE
     Indication: NEOPLASM MALIGNANT
     Dosage: 1500 EVERY AM AND 2000 EVERY PM
     Route: 048
     Dates: start: 20140716

REACTIONS (4)
  - Vomiting [Unknown]
  - Diarrhoea [Unknown]
  - Burning sensation [Unknown]
  - Skin exfoliation [Unknown]
